FAERS Safety Report 13540548 (Version 8)
Quarter: 2020Q2

REPORT INFORMATION
  Report Type: Report from Study
  Country: UG (occurrence: UG)
  Receive Date: 20170512
  Receipt Date: 20200523
  Transmission Date: 20200713
  Serious: Yes (Death, Life-Threatening, Hospitalization, Other)
  Sender: FDA-Public Use
  Company Number: UG-CIPLA LTD.-2017UG08653

PATIENT

DRUGS (5)
  1. AMPHOTERICIN B LIPOSOMAL [Suspect]
     Active Substance: AMPHOTERICIN B
     Indication: MENINGITIS CRYPTOCOCCAL
     Dosage: 6 MILLIGRAM/KILOGRAM, QD
     Route: 042
     Dates: start: 20170505, end: 20170509
  2. COTRIMOXAZOLE [Concomitant]
     Active Substance: SULFAMETHOXAZOLE\TRIMETHOPRIM
     Indication: PROPHYLAXIS AGAINST HIV INFECTION
     Dosage: 960 MILLIGRAM, QD
     Route: 048
     Dates: start: 20170502, end: 20170512
  3. DICLOFENAC [Concomitant]
     Active Substance: DICLOFENAC
     Indication: HEADACHE
     Dosage: 50 MILLIGRAM, TID
     Route: 048
     Dates: start: 20170502, end: 20170512
  4. DICLOFENAC [Concomitant]
     Active Substance: DICLOFENAC
     Indication: PYREXIA
  5. DICLOFENAC [Concomitant]
     Active Substance: DICLOFENAC
     Indication: ABDOMINAL PAIN

REACTIONS (7)
  - Brain oedema [Unknown]
  - Intracranial pressure increased [None]
  - Brain herniation [Unknown]
  - Abdominal discomfort [Unknown]
  - Hypotension [Recovered/Resolved]
  - Brain stem syndrome [None]
  - Generalised tonic-clonic seizure [None]

NARRATIVE: CASE EVENT DATE: 20170505
